FAERS Safety Report 24678977 (Version 3)
Quarter: 2025Q1

REPORT INFORMATION
  Report Type: Report from Study
  Country: GB (occurrence: GB)
  Receive Date: 20241129
  Receipt Date: 20250320
  Transmission Date: 20250408
  Serious: Yes (Other)
  Sender: NOVARTIS
  Company Number: GB-002147023-NVSC2024GB158035

PATIENT
  Sex: Female

DRUGS (3)
  1. KESIMPTA [Suspect]
     Active Substance: OFATUMUMAB
     Indication: Relapsing-remitting multiple sclerosis
     Route: 058
  2. KESIMPTA [Suspect]
     Active Substance: OFATUMUMAB
     Dosage: 20 MG, QMO
     Route: 058
  3. KESIMPTA [Suspect]
     Active Substance: OFATUMUMAB
     Dosage: 20 MG, QD
     Route: 058

REACTIONS (24)
  - Relapsing multiple sclerosis [Not Recovered/Not Resolved]
  - Multiple sclerosis [Not Recovered/Not Resolved]
  - Pain [Not Recovered/Not Resolved]
  - Hypoaesthesia [Unknown]
  - Gait disturbance [Recovering/Resolving]
  - Limb discomfort [Unknown]
  - Ocular discomfort [Recovering/Resolving]
  - Eye movement disorder [Recovering/Resolving]
  - Eye irritation [Recovering/Resolving]
  - Confusional state [Unknown]
  - Mobility decreased [Not Recovered/Not Resolved]
  - Hypoaesthesia [Recovered/Resolved]
  - Optic neuritis [Recovering/Resolving]
  - COVID-19 [Recovered/Resolved]
  - Inappropriate schedule of product administration [Unknown]
  - Oral herpes [Recovering/Resolving]
  - Injection site hypoaesthesia [Recovered/Resolved]
  - Rhinorrhoea [Unknown]
  - Movement disorder [Unknown]
  - Pain in extremity [Not Recovered/Not Resolved]
  - Hypoacusis [Unknown]
  - Cognitive disorder [Not Recovered/Not Resolved]
  - Emotional distress [Unknown]
  - Visual impairment [Not Recovered/Not Resolved]
